FAERS Safety Report 9537015 (Version 1)
Quarter: 2013Q3

REPORT INFORMATION
  Report Type: Spontaneous
  Country: US (occurrence: None)
  Receive Date: 20130918
  Receipt Date: 20130918
  Transmission Date: 20140515
  Serious: Yes (Other)
  Sender: FDA-Public Use
  Company Number: None

PATIENT
  Age: 30 Year
  Sex: Female
  Weight: 99.79 kg

DRUGS (1)
  1. LAMOTRIGINE [Suspect]
     Indication: MOOD ALTERED
     Dosage: LAMOTRIGINE 200MG QD ORAL
     Route: 048
     Dates: start: 20130313, end: 20130917

REACTIONS (5)
  - Insomnia [None]
  - Anxiety [None]
  - Depression [None]
  - Impaired work ability [None]
  - Disturbance in attention [None]
